FAERS Safety Report 15334245 (Version 1)
Quarter: 2018Q3

REPORT INFORMATION
  Report Type: Spontaneous
  Country: US (occurrence: US)
  Receive Date: 20180827
  Receipt Date: 20180827
  Transmission Date: 20181010
  Serious: Yes (Hospitalization)
  Sender: FDA-Public Use
  Company Number: None

PATIENT
  Age: 49 Year
  Sex: Female
  Weight: 68.1 kg

DRUGS (1)
  1. VITAMIN D3 [Suspect]
     Active Substance: CHOLECALCIFEROL
     Indication: COLON CANCER
     Route: 048
     Dates: start: 20180822, end: 20180822

REACTIONS (3)
  - Large intestinal obstruction [None]
  - Diarrhoea haemorrhagic [None]
  - Vomiting [None]

NARRATIVE: CASE EVENT DATE: 20180823
